FAERS Safety Report 4523039-4 (Version None)
Quarter: 2004Q4

REPORT INFORMATION
  Report Type: 
  Country: None (occurrence: None)
  Receive Date: 20041208
  Receipt Date: 20041126
  Transmission Date: 20050328
  Serious: Yes (Other)
  Sender: FDA-Public Use
  Company Number: FR-2004-035788

PATIENT
  Age: 55 Year
  Sex: Female

DRUGS (2)
  1. MAGNEVIST [Suspect]
     Indication: NUCLEAR MAGNETIC RESONANCE IMAGING
     Dosage: PARENTERAL
     Route: 042
     Dates: start: 20041103, end: 20041103
  2. LUTENYL [Concomitant]

REACTIONS (3)
  - ARTHRALGIA [None]
  - BLOOD THYROID STIMULATING HORMONE INCREASED [None]
  - CYTOLYTIC HEPATITIS [None]
